FAERS Safety Report 4787224-9 (Version None)
Quarter: 2005Q3

REPORT INFORMATION
  Report Type: 
  Country: None (occurrence: None)
  Receive Date: 20050930
  Receipt Date: 20050919
  Transmission Date: 20060218
  Serious: Yes (Hospitalization)
  Sender: FDA-Public Use
  Company Number: HQWYE550020SEP05

PATIENT
  Age: 67 Year
  Sex: Male
  Weight: 118.1 kg

DRUGS (20)
  1. RAPAMUNE [Suspect]
     Indication: PROPHYLAXIS AGAINST TRANSPLANT REJECTION
     Dosage: SEE IMAGE
     Route: 048
     Dates: start: 20050211, end: 20050901
  2. RAPAMUNE [Suspect]
     Indication: PROPHYLAXIS AGAINST TRANSPLANT REJECTION
     Dosage: SEE IMAGE
     Route: 048
     Dates: start: 20050901
  3. ZENAPAX [Concomitant]
  4. PROGRAM (TACROLIMUS) [Concomitant]
  5. PREDNISONE [Concomitant]
  6. PREVACID [Concomitant]
  7. MULTIVITAMINS, PLAIN (MULTIVITMAINS, PLAIN) [Concomitant]
  8. LIPITOR [Concomitant]
  9. NORVASC [Concomitant]
  10. CLONIDINE [Concomitant]
  11. CARDURA (DUTASTERIDE) [Concomitant]
  12. BACTRIM [Concomitant]
  13. CALCIUM (CALCIUM) [Concomitant]
  14. FISH OIL, HYDROGENATED (FISH OIL, HYDROGENATED) [Concomitant]
  15. ASPIRIN [Concomitant]
  16. AMARYL [Concomitant]
  17. FERROUS SULFATE TAB [Concomitant]
  18. ARANESP [Concomitant]
  19. LANTUS [Concomitant]
  20. NOVOLOG [Concomitant]

REACTIONS (4)
  - DRUG INEFFECTIVE [None]
  - IMMUNOSUPPRESSANT DRUG LEVEL INCREASED [None]
  - KIDNEY TRANSPLANT REJECTION [None]
  - PYREXIA [None]
